FAERS Safety Report 26174002 (Version 1)
Quarter: 2025Q4

REPORT INFORMATION
  Report Type: Spontaneous
  Country: US (occurrence: US)
  Receive Date: 20251218
  Receipt Date: 20251218
  Transmission Date: 20260118
  Serious: No
  Sender: ALVOGEN
  Company Number: US-ALVOGEN-2025098002

PATIENT
  Age: 62 Year
  Sex: Female

DRUGS (2)
  1. FENTANYL [Suspect]
     Active Substance: FENTANYL
     Indication: Back pain
     Dosage: THREE BOXES
  2. FENTANYL [Suspect]
     Active Substance: FENTANYL
     Indication: Back pain
     Dosage: 12 MCG/HR; EXPIRATION DATE: SEP-2027?FOURTH BOX?GTIN: 00347781423476 ?SN: 126537969959
     Dates: start: 202503

REACTIONS (4)
  - Device malfunction [Unknown]
  - Device adhesion issue [Unknown]
  - Wrong technique in device usage process [Unknown]
  - No adverse event [Unknown]

NARRATIVE: CASE EVENT DATE: 20250101
